FAERS Safety Report 23323271 (Version 1)
Quarter: 2023Q4

REPORT INFORMATION
  Report Type: Spontaneous
  Country: US (occurrence: None)
  Receive Date: 20231220
  Receipt Date: 20231220
  Transmission Date: 20240110
  Serious: Yes (Hospitalization)
  Sender: FDA-Public Use
  Company Number: US-ROCHE-3300568

PATIENT
  Sex: Female

DRUGS (1)
  1. RITUXIMAB [Suspect]
     Active Substance: RITUXIMAB
     Indication: Pemphigus
     Dosage: APPROXIMATELY 4-5 YEARS AGO, WHEN THE PATIENT WAS ADMINISTERED THE SECOND 1000 MG DOSE OF RITUXIMAB,
     Route: 041

REACTIONS (1)
  - Anaphylactic reaction [Recovered/Resolved]
